FAERS Safety Report 5309239-4 (Version None)
Quarter: 2007Q2

REPORT INFORMATION
  Report Type: 
  Country: None (occurrence: None)
  Receive Date: 20070427
  Receipt Date: 20070418
  Transmission Date: 20071010
  Serious: Yes (Other)
  Sender: FDA-Public Use
  Company Number: US-SP-2007-01316

PATIENT
  Age: 42 Year
  Sex: Male

DRUGS (2)
  1. TUBERCULIN PPD [Suspect]
     Indication: IMMUNISATION
     Route: 065
     Dates: start: 20070417
  2. TYPHIM VI [Suspect]
     Indication: IMMUNISATION
     Route: 065
     Dates: start: 20070417

REACTIONS (1)
  - DYSPNOEA [None]
